FAERS Safety Report 14001500 (Version 2)
Quarter: 2018Q1

REPORT INFORMATION
  Report Type: Spontaneous
  Country: FI (occurrence: FI)
  Receive Date: 20170922
  Receipt Date: 20180310
  Transmission Date: 20180508
  Serious: Yes (Other)
  Sender: FDA-Public Use
  Company Number: FI-ABBVIE-17P-055-2110727-00

PATIENT
  Sex: Female

DRUGS (4)
  1. DEPRAKINE [Suspect]
     Active Substance: VALPROIC ACID
     Indication: PRODUCT USED FOR UNKNOWN INDICATION
     Dosage: UNK
     Route: 048
  2. DEPRAKINE [Suspect]
     Active Substance: VALPROIC ACID
     Dosage: UNK
     Route: 048
  3. DEPRAKINE [Suspect]
     Active Substance: VALPROIC ACID
     Dosage: UNK
     Route: 048
  4. PRIMASPAN [Concomitant]
     Active Substance: ASPIRIN
     Indication: PRODUCT USED FOR UNKNOWN INDICATION
     Route: 065

REACTIONS (6)
  - Muscle spasms [Unknown]
  - Tremor [Recovering/Resolving]
  - Gait inability [Recovered/Resolved]
  - Dysgraphia [Recovering/Resolving]
  - Intentional product misuse [Unknown]
  - Fatigue [Unknown]
